FAERS Safety Report 8921218 (Version 1)
Quarter: 2012Q4

REPORT INFORMATION
  Report Type: 
  Country: US (occurrence: US)
  Receive Date: 20121122
  Receipt Date: 20121122
  Transmission Date: 20130627
  Serious: No
  Sender: FDA-Public Use
  Company Number: US-009507513-1211USA004029

PATIENT
  Sex: Male

DRUGS (3)
  1. PEGINTRON [Suspect]
     Indication: HEPATITIS C
     Dosage: 0.5 UNK, UNK
     Dates: start: 20120912, end: 2012
  2. PEGINTRON [Suspect]
     Dosage: 0.3 UNK, UNK
     Dates: start: 2012
  3. REBETOL [Suspect]
     Indication: HEPATITIS C
     Dosage: UNK
     Dates: start: 20120912

REACTIONS (2)
  - Eating disorder [Unknown]
  - Adverse event [Unknown]
